FAERS Safety Report 9483748 (Version 2)
Quarter: 2013Q3

REPORT INFORMATION
  Report Type: Spontaneous
  Country: US (occurrence: US)
  Receive Date: 20130828
  Receipt Date: 20130828
  Transmission Date: 20140515
  Serious: Yes (Hospitalization, Other)
  Sender: FDA-Public Use
  Company Number: US-AMGEN-KDL327032

PATIENT
  Age: 61 Year
  Sex: Male

DRUGS (2)
  1. ENBREL [Suspect]
     Indication: RHEUMATOID ARTHRITIS
     Dosage: 50 MG, QWK
     Route: 058
     Dates: start: 20030401
  2. LEFLUNOMIDE [Concomitant]
     Dosage: UNK UNK, UNK

REACTIONS (10)
  - Myocardial infarction [Unknown]
  - Renal failure chronic [Not Recovered/Not Resolved]
  - Catheterisation cardiac [Recovered/Resolved]
  - Coronary arterial stent insertion [Recovered/Resolved]
  - Catheter site haematoma [Recovered/Resolved]
  - Rheumatoid arthritis [Not Recovered/Not Resolved]
  - Productive cough [Not Recovered/Not Resolved]
  - Blood creatinine increased [Not Recovered/Not Resolved]
  - Diabetes mellitus [Not Recovered/Not Resolved]
  - Blood glucose increased [Not Recovered/Not Resolved]
